FAERS Safety Report 5951504-1 (Version None)
Quarter: 2008Q4

REPORT INFORMATION
  Report Type: 
  Country: None (occurrence: None)
  Receive Date: 20081110
  Receipt Date: 20081027
  Transmission Date: 20090506
  Serious: Yes (Death, Life-Threatening)
  Sender: FDA-Public Use
  Company Number: 2008-03341

PATIENT
  Age: 77 Year

DRUGS (1)
  1. VELCADE [Suspect]
     Indication: MULTIPLE MYELOMA
     Dosage: INTRAVENOUS
     Route: 042
     Dates: start: 20080909, end: 20080909

REACTIONS (3)
  - ANAEMIA [None]
  - ASPARTATE AMINOTRANSFERASE DECREASED [None]
  - BLOOD LACTATE DEHYDROGENASE DECREASED [None]
